FAERS Safety Report 20854052 (Version 1)
Quarter: 2022Q2

REPORT INFORMATION
  Report Type: Spontaneous
  Country: ES (occurrence: ES)
  Receive Date: 20220520
  Receipt Date: 20220520
  Transmission Date: 20220721
  Serious: Yes (Other)
  Sender: FDA-Public Use
  Company Number: None

PATIENT
  Age: 44 Year
  Sex: Female

DRUGS (8)
  1. ELIQUIS [Suspect]
     Active Substance: APIXABAN
     Indication: Product used for unknown indication
     Route: 048
     Dates: start: 20220309, end: 20220509
  2. FUROSEMIDA KERN PHARMA 40 mg COMPRIMIDOS EFG, 30 comprimidos [Concomitant]
     Indication: Product used for unknown indication
     Route: 048
     Dates: start: 20150518
  3. OMEPRAZOL GOBENS 20 MG CAPSULAS DURAS GASTRORRESISTENTES EFG, 28 c?psu [Concomitant]
     Indication: Product used for unknown indication
     Route: 048
     Dates: start: 20120602
  4. VALSARTAN NORMON 160 mg COMPRIMIDOS RECUBIERTOS CON PELICULA EFG , 28 [Concomitant]
     Indication: Product used for unknown indication
     Route: 048
     Dates: start: 20150518
  5. ROSUVASTATINA NORMON 10 MG COMPRIMIDOS RECUBIERTOS CON PELICULA EFG, 2 [Concomitant]
     Indication: Product used for unknown indication
     Route: 048
     Dates: start: 20190610
  6. LORMETAZEPAM NORMON 2 mg  COMPRIMIDOS EFG, 20 comprimidos [Concomitant]
     Indication: Product used for unknown indication
     Route: 048
     Dates: start: 20120610
  7. ALDACTONE [Concomitant]
     Active Substance: SPIRONOLACTONE
     Indication: Product used for unknown indication
     Route: 048
     Dates: start: 20210908
  8. EUTIROX  75 microgramos COMPRIMIDOS, 100 comprimidos [Concomitant]
     Indication: Product used for unknown indication
     Route: 048
     Dates: start: 20160718

REACTIONS (1)
  - Alopecia [Unknown]

NARRATIVE: CASE EVENT DATE: 20220408
